FAERS Safety Report 8004727-4 (Version None)
Quarter: 2011Q4

REPORT INFORMATION
  Report Type: 
  Country: None (occurrence: None)
  Receive Date: 20111223
  Receipt Date: 20111219
  Transmission Date: 20120403
  Serious: Yes (Death, Hospitalization)
  Sender: FDA-Public Use
  Company Number: FR-JNJFOC-20111103967

PATIENT
  Age: 72 Year
  Sex: Male

DRUGS (5)
  1. OFLOXACIN [Suspect]
     Indication: INFECTION
     Route: 065
     Dates: start: 20111005, end: 20111013
  2. TARGOCID [Suspect]
     Indication: INFECTION
     Route: 065
     Dates: start: 20110913, end: 20111011
  3. FLUCONAZOLE [Suspect]
     Indication: INFECTION
     Route: 042
     Dates: start: 20111005, end: 20111013
  4. LEVOFLOXACIN [Suspect]
     Indication: INFECTION
     Route: 048
     Dates: start: 20110913, end: 20111005
  5. OMEPRAZOLE [Suspect]
     Indication: PRODUCT USED FOR UNKNOWN INDICATION
     Route: 048
     Dates: start: 20110909, end: 20110913

REACTIONS (4)
  - DEATH [None]
  - ANAEMIA [None]
  - AGRANULOCYTOSIS [None]
  - THROMBOCYTOPENIA [None]
